FAERS Safety Report 6242543-4 (Version None)
Quarter: 2009Q2

REPORT INFORMATION
  Report Type: 
  Country: None (occurrence: None)
  Receive Date: 20090624
  Receipt Date: 20090616
  Transmission Date: 20091009
  Serious: Yes (Hospitalization)
  Sender: FDA-Public Use
  Company Number: GB-ROCHE-638685

PATIENT
  Sex: Male
  Weight: 150 kg

DRUGS (2)
  1. ORLISTAT [Suspect]
     Indication: OBESITY
     Route: 048
     Dates: start: 20090113
  2. SIMVASTATIN [Concomitant]
     Dosage: REPORTED AS SIMVISTATIN
     Route: 048

REACTIONS (3)
  - FALL [None]
  - FRACTURE [None]
  - INJURY [None]
